FAERS Safety Report 5905213-5 (Version None)
Quarter: 2008Q4

REPORT INFORMATION
  Report Type: 
  Country: None (occurrence: None)
  Receive Date: 20081001
  Receipt Date: 20080919
  Transmission Date: 20090506
  Serious: Yes (Other)
  Sender: FDA-Public Use
  Company Number: US-PFIZER INC-2008075105

PATIENT
  Sex: Male

DRUGS (1)
  1. UROXATRAL [Suspect]

REACTIONS (2)
  - CARDIAC DISORDER [None]
  - POLLAKIURIA [None]
